FAERS Safety Report 5966763-9 (Version None)
Quarter: 2008Q4

REPORT INFORMATION
  Report Type: 
  Country: None (occurrence: None)
  Receive Date: 20081125
  Receipt Date: 20081117
  Transmission Date: 20090506
  Serious: Yes (Death, Hospitalization, Other)
  Sender: FDA-Public Use
  Company Number: JP-WYE-H06527008

PATIENT

DRUGS (1)
  1. ANCARON [Suspect]
     Dosage: UNSPECIFIED
     Route: 048

REACTIONS (3)
  - DEATH [None]
  - FUNGAL INFECTION [None]
  - PNEUMONIA [None]
